FAERS Safety Report 9627012 (Version 1)
Quarter: 2013Q4

REPORT INFORMATION
  Report Type: Spontaneous
  Country: US (occurrence: None)
  Receive Date: 20131011
  Receipt Date: 20131011
  Transmission Date: 20140711
  Serious: Yes (Life-Threatening, Hospitalization, Disabling)
  Sender: FDA-Public Use
  Company Number: 2280705-2013-00059

PATIENT
  Age: 2 Year
  Sex: Male

DRUGS (4)
  1. BABY ORAJEL ORAL [Suspect]
     Indication: ORAL PAIN
     Route: 048
     Dates: start: 20110805
  2. CLINDAMYCIN [Concomitant]
  3. TYLENOL #3 [Concomitant]
  4. MOTRIN [Concomitant]

REACTIONS (2)
  - Pallor [None]
  - Methaemoglobinaemia [None]
